FAERS Safety Report 6703251-6 (Version None)
Quarter: 2010Q2

REPORT INFORMATION
  Report Type: 
  Country: None (occurrence: None)
  Receive Date: 20100430
  Receipt Date: 20100419
  Transmission Date: 20101027
  Serious: Yes (Hospitalization)
  Sender: FDA-Public Use
  Company Number: US-JNJFOC-20100104526

PATIENT
  Sex: Female
  Weight: 108.86 kg

DRUGS (12)
  1. INFLIXIMAB [Suspect]
     Indication: PSORIASIS
     Dosage: 1 INFUSION
     Route: 042
  2. HUMIRA [Suspect]
     Indication: PSORIASIS
  3. HUMIRA [Suspect]
  4. HUMIRA [Suspect]
  5. ENBREL [Suspect]
     Indication: PSORIASIS
  6. ENBREL [Suspect]
  7. ENBREL [Suspect]
  8. SIMPONI [Suspect]
     Indication: PSORIASIS
     Route: 058
  9. SIMPONI [Suspect]
     Route: 058
  10. SIMPONI [Suspect]
     Route: 058
  11. METHOTREXATE [Suspect]
     Indication: PSORIASIS
  12. CORTICOSTEROIDS [Suspect]
     Indication: PSORIASIS
     Route: 061

REACTIONS (2)
  - CELLULITIS [None]
  - STAPHYLOCOCCAL INFECTION [None]
